FAERS Safety Report 21411961 (Version 2)
Quarter: 2022Q4

REPORT INFORMATION
  Report Type: Report from Study
  Country: US (occurrence: US)
  Receive Date: 20221005
  Receipt Date: 20221011
  Transmission Date: 20230113
  Serious: No
  Sender: FDA-Public Use
  Company Number: US-KYOWAKIRIN-2022BKK015479

PATIENT

DRUGS (2)
  1. CRYSVITA [Suspect]
     Active Substance: BUROSUMAB-TWZA
     Indication: Hereditary hypophosphataemic rickets
     Dosage: 70 MG, 1X/4 WEEKS (STRENGTH 20 MG/ML X2 AND 30 MG/ML COMBINED TO ACHIEVE DOSE OF 70 MG)
     Route: 058
     Dates: start: 20220907
  2. CRYSVITA [Suspect]
     Active Substance: BUROSUMAB-TWZA
     Indication: Hereditary hypophosphataemic rickets
     Dosage: 70 MG, 1X/4 WEEKS (STRENGTH 20 MG/ML X2 AND 30 MG/ML COMBINED TO ACHIEVE DOSE OF 70 MG)
     Route: 058
     Dates: start: 20220907

REACTIONS (2)
  - Hypersensitivity [Unknown]
  - Urticaria [Recovered/Resolved]

NARRATIVE: CASE EVENT DATE: 20220901
